FAERS Safety Report 11300919 (Version 1)
Quarter: 2015Q3

REPORT INFORMATION
  Report Type: Spontaneous
  Country: US (occurrence: US)
  Receive Date: 20150722
  Receipt Date: 20150722
  Transmission Date: 20151125
  Serious: No
  Sender: FDA-Public Use
  Company Number: US-ELI_LILLY_AND_COMPANY-US201201008155

PATIENT
  Age: 58 Year
  Sex: Female
  Weight: 77.1 kg

DRUGS (1)
  1. EVISTA [Suspect]
     Active Substance: RALOXIFENE HYDROCHLORIDE

REACTIONS (2)
  - Vision blurred [Recovered/Resolved]
  - Visual impairment [Recovered/Resolved]
